FAERS Safety Report 4592142-5 (Version None)
Quarter: 2005Q1

REPORT INFORMATION
  Report Type: 
  Country: None (occurrence: None)
  Receive Date: 20050226
  Receipt Date: 20020426
  Transmission Date: 20050727
  Serious: Yes (Death, Hospitalization)
  Sender: FDA-Public Use
  Company Number: GB-AMGEN-02040801

PATIENT
  Sex: Female

DRUGS (5)
  1. ENBREL [Suspect]
     Indication: RHEUMATOID ARTHRITIS
     Route: 058
     Dates: start: 20010731, end: 20020402
  2. ENBREL [Suspect]
  3. PREDNISOLONE [Concomitant]
     Dates: start: 19990201
  4. MELOXICAM [Concomitant]
     Dates: start: 19990201
  5. METHYLPREDNISOLONE [Concomitant]
     Dates: start: 20020313, end: 20020315

REACTIONS (5)
  - ARTHRITIS SALMONELLA [None]
  - BRONCHOPNEUMONIA [None]
  - GASTROENTERITIS SALMONELLA [None]
  - NOSOCOMIAL INFECTION [None]
  - SALMONELLA SEPSIS [None]
